FAERS Safety Report 6946290-2 (Version None)
Quarter: 2010Q3

REPORT INFORMATION
  Report Type: 
  Country: None (occurrence: None)
  Receive Date: 20100827
  Receipt Date: 20100728
  Transmission Date: 20110219
  Serious: Yes (Hospitalization, Other)
  Sender: FDA-Public Use
  Company Number: PHEH2007US04665

PATIENT
  Sex: Female
  Weight: 62.7 kg

DRUGS (93)
  1. ZOMETA [Suspect]
     Indication: OSTEOPOROSIS
     Dosage: UNK
  2. AREDIA [Suspect]
     Indication: OSTEOPOROSIS
     Dosage: UNK
     Route: 042
  3. COREG [Concomitant]
     Dosage: 3.125 MG, BID
  4. PERIDEX [Concomitant]
  5. CYTOXAN [Concomitant]
     Indication: SYSTEMIC LUPUS ERYTHEMATOSUS
  6. IMMUNE GLOBULIN (HUMAN) [Concomitant]
     Indication: SYSTEMIC LUPUS ERYTHEMATOSUS
     Route: 042
  7. PREDNISONE [Concomitant]
     Dosage: 9 MG / DAILY AM
  8. PLAQUENIL [Concomitant]
     Dosage: 200 MG / DAILY AM
  9. PRILOSEC [Concomitant]
  10. AMBIEN [Concomitant]
     Dosage: 12.5 / QHS
  11. CALCIUM CITRATE [Concomitant]
  12. BELLERGAL [Concomitant]
  13. DONNATAL [Concomitant]
  14. ASACOL [Concomitant]
     Dosage: 400 MG
  15. NEXIUM [Concomitant]
     Dosage: 40 MG / BID
  16. AGRYLIN [Concomitant]
     Dosage: UNK
  17. PERCOCET [Concomitant]
     Dosage: 5-325 MG / PRN
  18. FLEXERIL [Concomitant]
     Dosage: 5 MG
  19. AMANTADINE [Concomitant]
  20. CORTISONE ACETATE [Concomitant]
  21. ROCEPHIN [Concomitant]
     Dosage: 2 GM / QD
  22. SINGULAIR [Concomitant]
     Dosage: 10 MG
  23. FORTEO [Concomitant]
     Dosage: 750 MCG / DAILY AM
  24. ZOFRAN [Concomitant]
     Dosage: 8 MG / PRN
  25. LASIX [Concomitant]
     Dosage: 20 MG
  26. CLINDAMYCIN [Concomitant]
     Dosage: 900 MG / Q8
  27. INVANZ [Concomitant]
     Dosage: 1 GM / DAILY
  28. LEVAQUIN [Concomitant]
     Dosage: UNK
  29. ZYVOX [Concomitant]
     Dosage: UNK
  30. IMURAN [Concomitant]
     Dosage: UNK
  31. VANCOMYCIN [Concomitant]
     Dosage: UNK
  32. AUGMENTIN '125' [Concomitant]
     Dosage: UNK
  33. AVELOX [Concomitant]
     Dosage: UNK
  34. ANAGRELIDE HCL [Concomitant]
  35. METHOTREXATE [Concomitant]
  36. ENBREL [Concomitant]
  37. ACTOS [Concomitant]
     Dosage: 30 MG, QD
  38. CIPROFLOXACIN [Concomitant]
     Dosage: 500 MG, UNK
  39. MEPRON [Concomitant]
  40. CEFTIN [Concomitant]
     Dosage: 500 MG, UNK
  41. SALAGEN [Concomitant]
     Dosage: UNK
  42. MOBIC [Concomitant]
     Dosage: 7.5 MG, PRN
  43. FLAGYL [Concomitant]
  44. EVISTA [Concomitant]
     Dosage: 60 MG, UNK
  45. BONIVA [Concomitant]
     Dosage: UNK
     Dates: start: 20070101
  46. BEXTRA [Concomitant]
     Dosage: UNK
     Dates: start: 20010101
  47. LYRICA [Concomitant]
     Dosage: UNK
     Dates: start: 20080101
  48. DILAUDID [Concomitant]
     Dosage: UNK
  49. VICODIN [Concomitant]
     Dosage: UNK
  50. PRANDIN ^KUHN^ [Concomitant]
     Dosage: UNK
  51. ZOCOR [Concomitant]
     Dosage: UNK
  52. LIDODERM [Concomitant]
     Dosage: UNK
  53. CALCITONIN [Concomitant]
     Dosage: UNK
  54. WELCHOL [Concomitant]
     Dosage: UNK
  55. SOL MEDROL [Concomitant]
     Dosage: UNK
  56. TAGAMET [Concomitant]
     Dosage: UNK
  57. DIPRIVAN [Concomitant]
     Dosage: UNK
  58. COMPAZINE [Concomitant]
     Dosage: UNK
  59. PROVIGIL [Concomitant]
     Dosage: UNK
  60. MEFOXIN [Concomitant]
     Dosage: UNK
  61. PRAVACHOL [Concomitant]
     Dosage: UNK
  62. GAMIMUNE [Concomitant]
     Dosage: UNK
  63. DARBEPOETIN ALFA [Concomitant]
     Dosage: UNK
  64. MYCOSTATIN [Concomitant]
     Dosage: UNK
  65. KEFZOL [Concomitant]
     Dosage: UNK
  66. REGELAN [Concomitant]
     Dosage: UNK
  67. CLEOCIN [Concomitant]
     Dosage: UNK
  68. POLYGAM S/D [Concomitant]
     Dosage: UNK
  69. DECADRON [Concomitant]
     Dosage: UNK
  70. DIFLUCAN [Concomitant]
     Dosage: 100 MG, UNK
  71. EXFORGE (VALSARTAN/AMLODIPINE BESILATE) [Concomitant]
     Dosage: 5/320 MG
  72. ALBUTEROL [Concomitant]
  73. FLOVENT [Concomitant]
  74. DARVOCET-N 100 [Concomitant]
  75. ALLOPURINOL [Concomitant]
  76. CARAFATE [Concomitant]
  77. FLONASE [Concomitant]
  78. BACTROBAN                               /NET/ [Concomitant]
  79. KEFLEX [Concomitant]
  80. SUDAFED 12 HOUR [Concomitant]
  81. PRAVACHOL [Concomitant]
  82. SPECTAZOLE [Concomitant]
  83. BEROCCA                                 /SCH/ [Concomitant]
  84. NEPHRO-VITE [Concomitant]
  85. PROTONIX [Concomitant]
  86. VITAPLEX [Concomitant]
  87. ZOCOR [Concomitant]
  88. ASPIRIN [Concomitant]
  89. LOMOTIL [Concomitant]
  90. DEMEROL [Concomitant]
  91. FAMVIR                                  /NET/ [Concomitant]
  92. OXYCODONE [Concomitant]
  93. AMLODIPINE [Concomitant]

REACTIONS (100)
  - ABDOMINAL PAIN [None]
  - ANAEMIA [None]
  - APPENDICECTOMY [None]
  - APPENDICITIS [None]
  - APTYALISM [None]
  - ASTHMA [None]
  - BONE DEBRIDEMENT [None]
  - BONE DISORDER [None]
  - BONE EROSION [None]
  - BONE FRAGMENTATION [None]
  - BONE OPERATION [None]
  - BONE PAIN [None]
  - BRONCHOPNEUMONIA [None]
  - BURSITIS [None]
  - CELLULITIS [None]
  - COLITIS ULCERATIVE [None]
  - COR PULMONALE CHRONIC [None]
  - DENTAL CARIES [None]
  - DENTAL OPERATION [None]
  - DEVICE FAILURE [None]
  - DIARRHOEA [None]
  - DYSPHAGIA [None]
  - ENDODONTIC PROCEDURE [None]
  - ENTERITIS [None]
  - ENTEROCOCCAL INFECTION [None]
  - ESCHERICHIA INFECTION [None]
  - ESSENTIAL THROMBOCYTHAEMIA [None]
  - EXOSTOSIS [None]
  - EYE LASER SURGERY [None]
  - FACIAL NEURALGIA [None]
  - FATIGUE [None]
  - FOOT DEFORMITY [None]
  - FOOT FRACTURE [None]
  - GASTRODUODENITIS [None]
  - GASTROOESOPHAGEAL REFLUX DISEASE [None]
  - GENERALISED OEDEMA [None]
  - GINGIVAL INFECTION [None]
  - GINGIVAL PAIN [None]
  - GINGIVAL SWELLING [None]
  - GINGIVITIS [None]
  - HAEMANGIOMA [None]
  - HUMERUS FRACTURE [None]
  - HYPERGLYCAEMIA [None]
  - HYPOAESTHESIA [None]
  - HYPOGAMMAGLOBULINAEMIA [None]
  - JOINT DISLOCATION [None]
  - LUMBAR SPINAL STENOSIS [None]
  - LUNG DISORDER [None]
  - MALOCCLUSION [None]
  - METASTATIC NEOPLASM [None]
  - MOUTH ULCERATION [None]
  - NASAL CONGESTION [None]
  - OEDEMA PERIPHERAL [None]
  - OLIGURIA [None]
  - OSTEITIS [None]
  - OSTEITIS DEFORMANS [None]
  - OSTEOARTHRITIS [None]
  - OSTEOLYSIS [None]
  - OSTEOMYELITIS [None]
  - OSTEONECROSIS OF JAW [None]
  - OSTEOPENIA [None]
  - OSTEOPOROSIS [None]
  - OTITIS EXTERNA [None]
  - PAIN [None]
  - PAIN IN JAW [None]
  - PELVIC FRACTURE [None]
  - PERIODONTAL DISEASE [None]
  - PERIODONTITIS [None]
  - PLATELET COUNT INCREASED [None]
  - PLEURAL EFFUSION [None]
  - POOR DENTAL CONDITION [None]
  - PULPITIS DENTAL [None]
  - RECTAL HAEMORRHAGE [None]
  - RENAL FAILURE [None]
  - ROTATOR CUFF SYNDROME [None]
  - SCAB [None]
  - SCAN BONE MARROW ABNORMAL [None]
  - SCLERODERMA [None]
  - SENSORY LOSS [None]
  - SEPSIS [None]
  - SINUSITIS [None]
  - SPINAL OSTEOARTHRITIS [None]
  - STOMATITIS [None]
  - SWELLING [None]
  - SWELLING FACE [None]
  - SYSTEMIC LUPUS ERYTHEMATOSUS [None]
  - THROMBOCYTOSIS [None]
  - TOOTH ABSCESS [None]
  - TOOTH DISORDER [None]
  - TOOTH EXTRACTION [None]
  - TOOTH INJURY [None]
  - TRANSIENT ISCHAEMIC ATTACK [None]
  - TRICUSPID VALVE INCOMPETENCE [None]
  - TYMPANIC MEMBRANE DISORDER [None]
  - UTERINE ENLARGEMENT [None]
  - UTERINE LEIOMYOMA [None]
  - VASCULITIS [None]
  - VITREOUS DETACHMENT [None]
  - WEGENER'S GRANULOMATOSIS [None]
  - WOUND INFECTION STAPHYLOCOCCAL [None]
